FAERS Safety Report 8989274 (Version 1)
Quarter: 2012Q4

REPORT INFORMATION
  Report Type: 
  Country: US (occurrence: US)
  Receive Date: 20121227
  Receipt Date: 20121227
  Transmission Date: 20130627
  Serious: No
  Sender: FDA-Public Use
  Company Number: US-009507513-1212USA004502

PATIENT
  Sex: Female

DRUGS (2)
  1. SAPHRIS [Suspect]
     Dosage: 10 mg, qd
     Route: 060
     Dates: start: 201112
  2. SAPHRIS [Suspect]
     Dosage: 5 mg, qd
     Route: 060

REACTIONS (3)
  - Anxiety [Unknown]
  - Sedation [Unknown]
  - Withdrawal syndrome [Unknown]
